FAERS Safety Report 17811851 (Version 1)
Quarter: 2020Q2

REPORT INFORMATION
  Report Type: Spontaneous
  Country: US (occurrence: US)
  Receive Date: 20200521
  Receipt Date: 20200521
  Transmission Date: 20200714
  Serious: No
  Sender: FDA-Public Use
  Company Number: US-SA-2020SA130304

PATIENT
  Age: 79 Year
  Sex: Female

DRUGS (1)
  1. TAXOTERE [Suspect]
     Active Substance: DOCETAXEL
     Indication: BREAST CANCER
     Dosage: UNK
     Dates: start: 201910

REACTIONS (2)
  - Swelling [Recovering/Resolving]
  - Onychomadesis [Recovering/Resolving]

NARRATIVE: CASE EVENT DATE: 201911
